FAERS Safety Report 6095032-4 (Version None)
Quarter: 2009Q1

REPORT INFORMATION
  Report Type: 
  Country: None (occurrence: None)
  Receive Date: 20090227
  Receipt Date: 20080103
  Transmission Date: 20090719
  Serious: No
  Sender: FDA-Public Use
  Company Number: A0701205A

PATIENT
  Age: 18 Year
  Sex: Female

DRUGS (5)
  1. LAMICTAL [Suspect]
     Indication: BIPOLAR DISORDER
     Route: 048
  2. BIRTH CONTROL [Concomitant]
  3. AMBIEN [Concomitant]
  4. WELLBUTRIN [Concomitant]
     Route: 048
  5. ATIVAN [Concomitant]

REACTIONS (1)
  - RASH [None]
